FAERS Safety Report 15367177 (Version 1)
Quarter: 2018Q3

REPORT INFORMATION
  Report Type: Spontaneous
  Country: US (occurrence: US)
  Receive Date: 20180903
  Receipt Date: 20180903
  Transmission Date: 20181010
  Serious: Yes (Disabling)
  Sender: FDA-Public Use
  Company Number: None

PATIENT
  Age: 66 Year
  Sex: Male
  Weight: 72 kg

DRUGS (19)
  1. OMEGA 3 FISH OIL [Concomitant]
     Active Substance: FISH OIL\OMEGA-3 FATTY ACIDS
  2. VITAMIN K [Concomitant]
     Active Substance: PHYTONADIONE
  3. VITAMIN D3 [Concomitant]
     Active Substance: CHOLECALCIFEROL
  4. ENALAPRIL [Concomitant]
     Active Substance: ENALAPRIL
  5. TRIAMCINOLONE [Concomitant]
     Active Substance: TRIAMCINOLONE
  6. LION^S MANE MASHROOM [Concomitant]
  7. DESMOPRESSIN [Concomitant]
     Active Substance: DESMOPRESSIN
  8. KETOCONAZOLE. [Concomitant]
     Active Substance: KETOCONAZOLE
  9. LOW?DOSE ASPIRIN [Concomitant]
     Active Substance: ASPIRIN
  10. MELATONIN [Concomitant]
     Active Substance: MELATONIN
  11. CAFFEINE. [Concomitant]
     Active Substance: CAFFEINE
  12. NIFEDIPINE. [Concomitant]
     Active Substance: NIFEDIPINE
  13. IRON [Concomitant]
     Active Substance: IRON
  14. MULTI?MINERAL/MULTIVITAMIN [Concomitant]
  15. MIRTAZAPINE. [Suspect]
     Active Substance: MIRTAZAPINE
     Indication: INSOMNIA
     Dosage: ?          QUANTITY:1.2 ML MILLILITRE(S);?
     Route: 048
     Dates: start: 20150102
  16. FINASTERIDE. [Concomitant]
     Active Substance: FINASTERIDE
  17. ACETYL?L?CARNATINE [Concomitant]
  18. POTASSIUM GLUCONATE [Concomitant]
     Active Substance: POTASSIUM GLUCONATE
  19. MAGNESIUM [Concomitant]
     Active Substance: MAGNESIUM

REACTIONS (4)
  - Tinnitus [None]
  - Insomnia [None]
  - Withdrawal syndrome [None]
  - Fatigue [None]

NARRATIVE: CASE EVENT DATE: 20160713
